FAERS Safety Report 14102894 (Version 1)
Quarter: 2017Q4

REPORT INFORMATION
  Report Type: Spontaneous
  Country: FR (occurrence: FR)
  Receive Date: 20171018
  Receipt Date: 20171018
  Transmission Date: 20180321
  Serious: Yes (Hospitalization, Other)
  Sender: FDA-Public Use
  Company Number: FR-BAUSCH-BL-2017-029334

PATIENT
  Age: 42 Year
  Sex: Male

DRUGS (6)
  1. FLUOROURACIL. [Suspect]
     Active Substance: FLUOROURACIL
     Indication: OESOPHAGEAL ADENOCARCINOMA
     Dosage: 400 MG/M2, I.E. 920 MG TOTAL DOSE IN BOLUS IN 100 ML OF 5 PERCENT GLUCOSE SOLUTION
     Route: 065
  2. 5 PERCENT GLUCOSE [Concomitant]
     Route: 042
  3. 5 PERCENT GLUCOSE [Concomitant]
     Indication: PRODUCT USED FOR UNKNOWN INDICATION
     Route: 040
  4. FLUOROURACIL. [Suspect]
     Active Substance: FLUOROURACIL
     Dosage: 1,200 MG/M2, I.E. 5,500 MG TOTAL DOSE IN 140 ML OF NACL
     Route: 042
  5. SODIUM CHLORIDE. [Concomitant]
     Active Substance: SODIUM CHLORIDE
     Indication: PRODUCT USED FOR UNKNOWN INDICATION
     Route: 042
  6. OXALIPLATIN. [Suspect]
     Active Substance: OXALIPLATIN
     Indication: OESOPHAGEAL ADENOCARCINOMA
     Dosage: 85 MG/M2, I.E. 190 MG TOTAL DOSE IN 500 ML OF 5 PERCENT GLUCOSE SOLUTION
     Route: 042

REACTIONS (7)
  - Chest discomfort [Unknown]
  - Cardiotoxicity [Unknown]
  - Dysphonia [Recovering/Resolving]
  - Vocal cord paralysis [Unknown]
  - Toxicity to various agents [Unknown]
  - Administration site extravasation [Unknown]
  - Bronchospasm [Unknown]
